FAERS Safety Report 5380657-1 (Version None)
Quarter: 2007Q3

REPORT INFORMATION
  Report Type: 
  Country: None (occurrence: None)
  Receive Date: 20070706
  Receipt Date: 20070627
  Transmission Date: 20080115
  Serious: Yes (Hospitalization)
  Sender: FDA-Public Use
  Company Number: FR-ROCHE-423533

PATIENT
  Age: 41 Year
  Sex: Female
  Weight: 68 kg

DRUGS (6)
  1. PEG-INTERFERON ALFA 2A (RO 25-8310) [Suspect]
     Route: 058
     Dates: start: 20050111, end: 20050511
  2. RIBAVIRIN [Suspect]
     Route: 048
     Dates: start: 20050111, end: 20050511
  3. NOCTRAN [Concomitant]
  4. PROZAC [Concomitant]
  5. NEXIUM [Concomitant]
     Dates: start: 20050209
  6. GAVISCON [Concomitant]
     Dates: start: 20050209

REACTIONS (1)
  - RAYNAUD'S PHENOMENON [None]
